FAERS Safety Report 7872429-0 (Version None)
Quarter: 2011Q4

REPORT INFORMATION
  Report Type: 
  Country: None (occurrence: None)
  Receive Date: 20111030
  Receipt Date: 20111017
  Transmission Date: 20120403
  Serious: Yes (Hospitalization)
  Sender: FDA-Public Use
  Company Number: US-MYLANLABS-2011S1021813

PATIENT
  Age: 50 Year
  Sex: Male

DRUGS (4)
  1. METFORMIN HCL [Suspect]
     Route: 048
  2. METFORMIN HCL [Suspect]
     Indication: INTENTIONAL OVERDOSE
     Dosage: AT LEAST 52G
     Route: 048
  3. METFORMIN HCL [Suspect]
     Indication: TYPE 2 DIABETES MELLITUS
     Dosage: AT LEAST 52G
     Route: 048
  4. METFORMIN HCL [Suspect]
     Route: 048

REACTIONS (6)
  - HYPOTENSION [None]
  - RENAL FAILURE ACUTE [None]
  - SUICIDE ATTEMPT [None]
  - LACTIC ACIDOSIS [None]
  - TOXICITY TO VARIOUS AGENTS [None]
  - INTENTIONAL OVERDOSE [None]
